FAERS Safety Report 25684927 (Version 1)
Quarter: 2025Q3

REPORT INFORMATION
  Report Type: Spontaneous
  Country: RU (occurrence: RU)
  Receive Date: 20250815
  Receipt Date: 20250815
  Transmission Date: 20251021
  Serious: Yes (Other)
  Sender: BAYER HEALTHCARE PHARMACEUTICALS INC.
  Company Number: RU-BAYER-2025A107485

PATIENT
  Sex: Female

DRUGS (1)
  1. DIENOGEST\ESTRADIOL VALERATE [Suspect]
     Active Substance: DIENOGEST\ESTRADIOL VALERATE
     Route: 048
     Dates: start: 202505

REACTIONS (5)
  - Arrhythmia [None]
  - Dyspnoea [None]
  - Fatigue [None]
  - Mood altered [None]
  - Loss of libido [None]

NARRATIVE: CASE EVENT DATE: 20250101
